FAERS Safety Report 24532256 (Version 1)
Quarter: 2024Q4

REPORT INFORMATION
  Report Type: Spontaneous
  Country: CA (occurrence: CA)
  Receive Date: 20241022
  Receipt Date: 20241022
  Transmission Date: 20250114
  Serious: Yes (Other)
  Sender: ROCHE
  Company Number: CA-ROCHE-10000110507

PATIENT
  Age: 69 Year
  Sex: Female

DRUGS (1)
  1. RITUXIMAB [Suspect]
     Active Substance: RITUXIMAB
     Indication: Rheumatoid arthritis
     Route: 042

REACTIONS (8)
  - Arthralgia [Unknown]
  - Asthenia [Unknown]
  - Cough [Unknown]
  - Fatigue [Unknown]
  - Malaise [Unknown]
  - Organising pneumonia [Unknown]
  - Pain in extremity [Unknown]
  - Pyrexia [Unknown]
